FAERS Safety Report 7644140-2 (Version None)
Quarter: 2011Q3

REPORT INFORMATION
  Report Type: 
  Country: None (occurrence: None)
  Receive Date: 20110728
  Receipt Date: 20110728
  Transmission Date: 20111222
  Serious: Yes (Hospitalization, Other)
  Sender: FDA-Public Use
  Company Number: None

PATIENT
  Age: 51 Year
  Sex: Male

DRUGS (9)
  1. GLIPIZIDE TESTOSTERONE [Concomitant]
  2. NORTRIPTYLINE HCL [Concomitant]
  3. SIMVASTATIN [Concomitant]
  4. FAMOTIDINE [Concomitant]
  5. METOPROLOL TARTRATE [Concomitant]
  6. METOPROLOL TARTRATE [Concomitant]
  7. REGULAR INSULIN [Concomitant]
  8. REVLIMID [Suspect]
     Indication: MULTIPLE MYELOMA
     Dosage: REVLIMID 25 MG DAILY X21D/28D ORALLY
     Route: 048
     Dates: start: 20100501
  9. HYDROCODONE BITARTRATE AND ACETAMINOPHEN [Concomitant]

REACTIONS (1)
  - DEEP VEIN THROMBOSIS [None]
